FAERS Safety Report 5231741-4 (Version None)
Quarter: 2007Q1

REPORT INFORMATION
  Report Type: 
  Country: None (occurrence: None)
  Receive Date: 20061201
  Receipt Date: 20060925
  Transmission Date: 20070707
  Serious: No
  Sender: FDA-Public Use
  Company Number: 2006PV021960

PATIENT
  Age: 38 Year
  Sex: Male
  Weight: 49.8957 kg

DRUGS (4)
  1. BYETTA [Suspect]
     Indication: DIABETES MELLITUS
     Dosage: SEE IMAGE
     Route: 058
     Dates: start: 20060201, end: 20060301
  2. BYETTA [Suspect]
     Indication: DIABETES MELLITUS
     Dosage: SEE IMAGE
     Route: 058
     Dates: start: 20060301
  3. LANTUS [Concomitant]
  4. METFORMIN HCL [Concomitant]

REACTIONS (5)
  - ENERGY INCREASED [None]
  - EXOPHTHALMOS [None]
  - PALLOR [None]
  - STRESS [None]
  - WEIGHT INCREASED [None]
